FAERS Safety Report 5468709-9 (Version None)
Quarter: 2007Q3

REPORT INFORMATION
  Report Type: 
  Country: None (occurrence: None)
  Receive Date: 20070926
  Receipt Date: 20070917
  Transmission Date: 20080115
  Serious: Yes (Hospitalization, Other)
  Sender: FDA-Public Use
  Company Number: US-PFIZER INC-2006114969

PATIENT
  Sex: Male
  Weight: 72.6 kg

DRUGS (5)
  1. CELEBREX [Suspect]
     Indication: PAIN
     Dates: start: 20020801, end: 20030101
  2. VIOXX [Suspect]
     Indication: ARTHRITIS
     Dates: start: 19991005
  3. PRINIVIL [Concomitant]
     Indication: RENAL DISORDER
  4. ZESTRIL [Concomitant]
     Indication: RENAL DISORDER
     Dates: start: 19910101
  5. ZETIA [Concomitant]
     Indication: BLOOD CHOLESTEROL INCREASED
     Dates: start: 20010101

REACTIONS (2)
  - BLINDNESS [None]
  - CEREBROVASCULAR ACCIDENT [None]
